FAERS Safety Report 11696570 (Version 2)
Quarter: 2015Q4

REPORT INFORMATION
  Report Type: Spontaneous
  Country: US (occurrence: US)
  Receive Date: 20151104
  Receipt Date: 20151110
  Transmission Date: 20160304
  Serious: No
  Sender: FDA-Public Use
  Company Number: US-ELI_LILLY_AND_COMPANY-US200708002716

PATIENT
  Age: 60 Year
  Sex: Female

DRUGS (9)
  1. COLACE [Concomitant]
     Active Substance: DOCUSATE SODIUM
  2. FORTEO [Suspect]
     Active Substance: TERIPARATIDE
     Dosage: 20 UG, QD
     Route: 058
  3. FIBERCON [Concomitant]
     Active Substance: CALCIUM POLYCARBOPHIL
  4. MIRALAX [Concomitant]
     Active Substance: POLYETHYLENE GLYCOL 3350
  5. PHILLIPS MILK OF MAGNESIA [Concomitant]
  6. MURELAX [Concomitant]
  7. FORTEO [Suspect]
     Active Substance: TERIPARATIDE
     Indication: OSTEOPOROSIS
     Dosage: 20 UG, DAILY (1/D)
     Route: 058
     Dates: start: 20070728
  8. FORTEO [Suspect]
     Active Substance: TERIPARATIDE
     Dosage: 20 UG, DAILY (1/D)
     Route: 058
  9. ACTONEL [Concomitant]
     Active Substance: RISEDRONATE SODIUM

REACTIONS (17)
  - Arthritis [Not Recovered/Not Resolved]
  - Peripheral swelling [Recovered/Resolved]
  - Abdominal distension [Recovering/Resolving]
  - Adverse drug reaction [Recovering/Resolving]
  - Vein disorder [Not Recovered/Not Resolved]
  - Dizziness [Recovered/Resolved]
  - Weight increased [Recovering/Resolving]
  - Swelling [Recovered/Resolved]
  - Muscular weakness [Unknown]
  - Joint swelling [Recovered/Resolved]
  - Systemic lupus erythematosus [Unknown]
  - Constipation [Recovering/Resolving]
  - Back disorder [Unknown]
  - Pain in extremity [Unknown]
  - Lymphoedema [Not Recovered/Not Resolved]
  - Gastrointestinal motility disorder [Unknown]
  - Muscle spasms [Unknown]

NARRATIVE: CASE EVENT DATE: 20070730
